FAERS Safety Report 14422032 (Version 1)
Quarter: 2018Q1

REPORT INFORMATION
  Report Type: Spontaneous
  Country: BE (occurrence: BE)
  Receive Date: 20180123
  Receipt Date: 20180123
  Transmission Date: 20180509
  Serious: Yes (Other)
  Sender: FDA-Public Use
  Company Number: BE-ABBVIE-18K-013-2229924-00

PATIENT
  Age: 43 Year
  Sex: Female

DRUGS (1)
  1. HUMIRA [Suspect]
     Active Substance: ADALIMUMAB
     Indication: PRODUCT USED FOR UNKNOWN INDICATION
     Route: 058
     Dates: start: 2013, end: 2015

REACTIONS (9)
  - Bone erosion [Unknown]
  - Tenosynovitis [Unknown]
  - Enthesopathy [Unknown]
  - Peripheral swelling [Not Recovered/Not Resolved]
  - Drug effect decreased [Unknown]
  - Ischaemic stroke [Unknown]
  - Joint swelling [Not Recovered/Not Resolved]
  - Synovitis [Unknown]
  - Arthralgia [Not Recovered/Not Resolved]

NARRATIVE: CASE EVENT DATE: 2014
